FAERS Safety Report 8836007 (Version 1)
Quarter: 2012Q4

REPORT INFORMATION
  Report Type: 
  Country: NL (occurrence: NL)
  Receive Date: 20121011
  Receipt Date: 20121011
  Transmission Date: 20130627
  Serious: Yes (Hospitalization, Other)
  Sender: FDA-Public Use
  Company Number: NL-ABBOTT-12P-114-0993676-00

PATIENT
  Age: 48 Year
  Sex: Female

DRUGS (6)
  1. VALPROIC ACID [Suspect]
     Indication: NASOPHARYNGEAL CANCER
     Dosage: 12.5mg/kg daily
     Route: 048
  2. VALPROIC ACID [Suspect]
     Dosage: 12.5mg/kg daily
     Route: 048
  3. GEMCITABINE [Suspect]
     Indication: NASOPHARYNGEAL CANCER
     Dosage: 1250 mg/square meter
     Route: 042
  4. GEMCITABINE [Suspect]
     Dosage: 1250 mg/square meter
     Route: 042
  5. GANCICLOVIR [Suspect]
     Indication: NASOPHARYNGEAL CANCER
     Dosage: 1350mg daily
     Route: 048
  6. GANCICLOVIR [Suspect]
     Dosage: 1350mg daily
     Route: 048

REACTIONS (5)
  - Infection [Unknown]
  - Pneumonia aspiration [Unknown]
  - Decreased appetite [Unknown]
  - Hepatotoxicity [Unknown]
  - Alanine aminotransferase increased [Unknown]
